FAERS Safety Report 5652729-5 (Version None)
Quarter: 2008Q1

REPORT INFORMATION
  Report Type: 
  Country: None (occurrence: None)
  Receive Date: 20080305
  Receipt Date: 20080305
  Transmission Date: 20080703
  Serious: Yes (Hospitalization)
  Sender: FDA-Public Use
  Company Number: None

PATIENT
  Sex: Female
  Weight: 97.3 kg

DRUGS (2)
  1. CARBOPLATIN [Suspect]
     Dosage: 725 MG
     Dates: start: 20070723
  2. TAXOL [Suspect]
     Dosage: 345 MG
     Dates: end: 20070723

REACTIONS (8)
  - CULTURE URINE POSITIVE [None]
  - DEEP VEIN THROMBOSIS [None]
  - DEHYDRATION [None]
  - DRUG ERUPTION [None]
  - INFECTION [None]
  - PULMONARY EMBOLISM [None]
  - PYREXIA [None]
  - SYNCOPE [None]
